FAERS Safety Report 23056643 (Version 1)
Quarter: 2023Q4

REPORT INFORMATION
  Report Type: Spontaneous
  Country: US (occurrence: US)
  Receive Date: 20231011
  Receipt Date: 20231011
  Transmission Date: 20240109
  Serious: Yes (Other)
  Sender: FDA-Public Use
  Company Number: US-BAXTER-2023BAX032663

PATIENT
  Age: 64 Year
  Sex: Male

DRUGS (4)
  1. VANCOMYCIN [Suspect]
     Active Substance: VANCOMYCIN
     Indication: Infection
     Dosage: 1750 MG, EVERY 12 H (DAY ONE)
     Route: 042
     Dates: start: 20221102
  2. VANCOMYCIN [Suspect]
     Active Substance: VANCOMYCIN
     Dosage: INCREASED DOSE OF 2500 MG OVERNIGHT ON DAY FOUR
     Route: 042
  3. CEFEPIME [Concomitant]
     Active Substance: CEFEPIME HYDROCHLORIDE
     Indication: Infection
     Dosage: UNK
     Route: 065
  4. METRONIDAZOLE [Concomitant]
     Active Substance: METRONIDAZOLE
     Indication: Infection
     Dosage: UNK
     Route: 065

REACTIONS (6)
  - Toxicity to various agents [Unknown]
  - Nausea [Unknown]
  - Hyperhidrosis [Unknown]
  - Pyrexia [Unknown]
  - Blood creatinine increased [Unknown]
  - Overdose [Unknown]
